FAERS Safety Report 6030148-X (Version None)
Quarter: 2009Q1

REPORT INFORMATION
  Report Type: 
  Country: None (occurrence: None)
  Receive Date: 20090105
  Receipt Date: 20090105
  Transmission Date: 20090719
  Serious: Yes (Other)
  Sender: FDA-Public Use
  Company Number: None

PATIENT
  Age: 55 Year
  Sex: Female
  Weight: 90.7194 kg

DRUGS (1)
  1. ALDENDRONATE SODIUM TABLETS 70MG TEVA PHARMACEUTICALS USA [Suspect]
     Indication: OSTEOPOROSIS
     Dosage: 70MG ONCE WEEKLY PO
     Route: 048
     Dates: start: 20080806, end: 20080914

REACTIONS (1)
  - SCLERITIS [None]
